FAERS Safety Report 6751129-4 (Version None)
Quarter: 2010Q2

REPORT INFORMATION
  Report Type: 
  Country: None (occurrence: None)
  Receive Date: 20100602
  Receipt Date: 20100525
  Transmission Date: 20101027
  Serious: Yes (Hospitalization)
  Sender: FDA-Public Use
  Company Number: FR-ASTRAZENECA-2010SE23955

PATIENT
  Age: 4362 Day
  Sex: Female
  Weight: 55 kg

DRUGS (1)
  1. ZOMIG [Suspect]
     Indication: MIGRAINE
     Route: 048
     Dates: start: 20100429, end: 20100429

REACTIONS (7)
  - CHEST DISCOMFORT [None]
  - DIZZINESS [None]
  - MIGRAINE [None]
  - NAUSEA [None]
  - OFF LABEL USE [None]
  - PALPITATIONS [None]
  - THROAT TIGHTNESS [None]
